FAERS Safety Report 8998636 (Version 1)
Quarter: 2013Q1

REPORT INFORMATION
  Report Type: Spontaneous
  Country: IN (occurrence: IN)
  Receive Date: 20130103
  Receipt Date: 20130103
  Transmission Date: 20140127
  Serious: Yes (Death)
  Sender: FDA-Public Use
  Company Number: PHHY2012IN121540

PATIENT
  Age: 56 Year
  Sex: Male

DRUGS (1)
  1. SEBIVO [Suspect]
     Indication: HEPATIC CIRRHOSIS
     Dosage: 600 MG, DAILY
     Route: 048
     Dates: start: 20121224

REACTIONS (2)
  - Cardiac arrest [Fatal]
  - Blood pressure decreased [Fatal]
